FAERS Safety Report 4546142-1 (Version None)
Quarter: 2005Q1

REPORT INFORMATION
  Report Type: 
  Country: None (occurrence: None)
  Receive Date: 20050103
  Receipt Date: 20041220
  Transmission Date: 20050727
  Serious: Yes (Hospitalization, Other)
  Sender: FDA-Public Use
  Company Number: 2004116803

PATIENT
  Sex: Female
  Weight: 62.1428 kg

DRUGS (4)
  1. CELEBREX [Suspect]
     Indication: ARTHRITIS
     Dosage: 2 IN 1 D ORAL
     Route: 048
     Dates: end: 20021101
  2. VITAMINS (VITAMINS) [Concomitant]
  3. CALCIUM (CALCIUM) [Concomitant]
  4. ESTROGENS (ESTROGENS) [Concomitant]

REACTIONS (11)
  - ARRHYTHMIA [None]
  - ARTHRITIS [None]
  - BLOOD PRESSURE INCREASED [None]
  - CARDIAC DISORDER [None]
  - CHOLECYSTECTOMY [None]
  - CONDITION AGGRAVATED [None]
  - GASTRIC DISORDER [None]
  - GASTROINTESTINAL ULCER HAEMORRHAGE [None]
  - HEART RATE INCREASED [None]
  - PANCREATITIS [None]
  - SUPRAVENTRICULAR TACHYCARDIA [None]
